FAERS Safety Report 4705602-0 (Version None)
Quarter: 2005Q3

REPORT INFORMATION
  Report Type: 
  Country: None (occurrence: None)
  Receive Date: 20050701
  Receipt Date: 20050620
  Transmission Date: 20060218
  Serious: Yes (Hospitalization)
  Sender: FDA-Public Use
  Company Number: US-BOEHRINGER INGELHEIM PHARMACEUTICALS, INC.-2005-UK-01117UK

PATIENT
  Sex: Male

DRUGS (6)
  1. MICARDIS [Suspect]
     Indication: CEREBROVASCULAR ACCIDENT PROPHYLAXIS
     Route: 048
  2. CLOPIDOGREL BISULFATE [Suspect]
     Indication: CEREBROVASCULAR ACCIDENT PROPHYLAXIS
     Route: 048
  3. PLACEBO [Suspect]
     Indication: CEREBROVASCULAR ACCIDENT PROPHYLAXIS
     Route: 048
  4. QUINIDINE HCL [Suspect]
  5. ACCUPRIL [Concomitant]
     Route: 048
  6. NORVASC [Concomitant]
     Route: 048

REACTIONS (4)
  - DIARRHOEA [None]
  - NAUSEA [None]
  - RENAL FAILURE [None]
  - WEIGHT DECREASED [None]
